FAERS Safety Report 16415841 (Version 2)
Quarter: 2019Q3

REPORT INFORMATION
  Report Type: Spontaneous
  Country: DE (occurrence: DE)
  Receive Date: 20190611
  Receipt Date: 20190708
  Transmission Date: 20191004
  Serious: Yes (Other)
  Sender: FDA-Public Use
  Company Number: DE-ASTRAZENECA-2019SE83653

PATIENT
  Age: 21048 Day
  Sex: Male
  Weight: 70 kg

DRUGS (3)
  1. ATORVASTATIN [Concomitant]
     Active Substance: ATORVASTATIN
     Indication: BLOOD CHOLESTEROL ABNORMAL
     Dates: start: 201606, end: 201906
  2. BRIMICA GENUAIR [Suspect]
     Active Substance: ACLIDINIUM BROMIDE\FORMOTEROL FUMARATE
     Indication: CHRONIC OBSTRUCTIVE PULMONARY DISEASE
     Dosage: 340.0 / 12.0 PER DAY
     Route: 055
     Dates: start: 20160104, end: 201906
  3. LOCOL [Concomitant]
     Indication: BLOOD CHOLESTEROL ABNORMAL
     Dates: start: 200605, end: 201604

REACTIONS (2)
  - Vasculitis [Not Recovered/Not Resolved]
  - Autoimmune disorder [Recovered/Resolved]

NARRATIVE: CASE EVENT DATE: 20160104
